FAERS Safety Report 12535486 (Version 1)
Quarter: 2016Q3

REPORT INFORMATION
  Report Type: Spontaneous
  Country: US (occurrence: None)
  Receive Date: 20160706
  Receipt Date: 20160706
  Transmission Date: 20161109
  Serious: Yes (Disabling)
  Sender: FDA-Public Use
  Company Number: None

PATIENT
  Age: 38 Year
  Sex: Female
  Weight: 42.64 kg

DRUGS (3)
  1. PRENATAL VITAMINS [Concomitant]
     Active Substance: VITAMINS
  2. DHA [Concomitant]
     Active Substance: DIETARY SUPPLEMENT
  3. GONAL F RFF REDI-JECT, 450 IU [Suspect]
     Indication: IN VITRO FERTILISATION
     Route: 058
     Dates: start: 20160619, end: 20160626

REACTIONS (3)
  - Intra-abdominal fluid collection [None]
  - Urinary retention [None]
  - Abdominal distension [None]

NARRATIVE: CASE EVENT DATE: 20160627
